FAERS Safety Report 13418856 (Version 1)
Quarter: 2017Q2

REPORT INFORMATION
  Report Type: Spontaneous
  Country: CA (occurrence: CA)
  Receive Date: 20170406
  Receipt Date: 20170406
  Transmission Date: 20170830
  Serious: Yes (Other)
  Sender: FDA-Public Use
  Company Number: CA-ROCHE-1907216

PATIENT
  Age: 74 Year
  Sex: Female

DRUGS (2)
  1. RITUXAN [Suspect]
     Active Substance: RITUXIMAB
     Indication: MULTIPLE SCLEROSIS
     Route: 042
  2. RITUXAN [Suspect]
     Active Substance: RITUXIMAB
     Dosage: WEEKLY X 4 DOSES
     Route: 042
     Dates: start: 20170301

REACTIONS (8)
  - Muscle spasms [Unknown]
  - Dysphagia [Unknown]
  - Movement disorder [Recovering/Resolving]
  - Erythema [Unknown]
  - Urticaria [Unknown]
  - Dysarthria [Unknown]
  - Palmar erythema [Unknown]
  - Sensory loss [Recovering/Resolving]

NARRATIVE: CASE EVENT DATE: 20170311
